FAERS Safety Report 4715597-1 (Version None)
Quarter: 2005Q3

REPORT INFORMATION
  Report Type: 
  Country: None (occurrence: None)
  Receive Date: 20050713
  Receipt Date: 20050308
  Transmission Date: 20060218
  Serious: Yes (Hospitalization)
  Sender: FDA-Public Use
  Company Number: 2005FR-00074

PATIENT
  Age: 62 Year
  Sex: Female

DRUGS (6)
  1. ASPIRIN [Suspect]
     Indication: MYOCARDIAL ISCHAEMIA
     Dosage: 75 MG, OD, ORAL
     Route: 048
     Dates: start: 20020101, end: 20050208
  2. ACROXIA [Concomitant]
  3. CLOPIDOGREL BISULFATE [Concomitant]
  4. AMLODIPINE [Concomitant]
  5. BISOPROLOL [Concomitant]
  6. PRAVASTATIN [Concomitant]

REACTIONS (6)
  - DUODENITIS [None]
  - FAECES DISCOLOURED [None]
  - GASTRIC ULCER [None]
  - HIATUS HERNIA [None]
  - LETHARGY [None]
  - OESOPHAGITIS [None]
